FAERS Safety Report 6671648-9 (Version None)
Quarter: 2010Q2

REPORT INFORMATION
  Report Type: 
  Country: None (occurrence: None)
  Receive Date: 20100406
  Receipt Date: 20100406
  Transmission Date: 20101027
  Serious: Yes (Death)
  Sender: FDA-Public Use
  Company Number: None

PATIENT
  Sex: Female
  Weight: 58.514 kg

DRUGS (7)
  1. HUMIRA [Suspect]
     Indication: RHEUMATOID ARTHRITIS
     Dosage: 40 Q 14 DAYS SQ
     Route: 058
     Dates: start: 20040420, end: 20100120
  2. PREDNISONE TAB [Concomitant]
  3. METHOTREXATE [Concomitant]
  4. STATIN [Concomitant]
  5. THYROXINE [Concomitant]
  6. ACE INHIBITOR [Concomitant]
  7. FUROSEMIDE [Concomitant]

REACTIONS (3)
  - MULTI-ORGAN FAILURE [None]
  - RESPIRATORY FAILURE [None]
  - SEPSIS [None]
